FAERS Safety Report 8534864-7 (Version None)
Quarter: 2012Q3

REPORT INFORMATION
  Report Type: 
  Country: None (occurrence: None)
  Receive Date: 20120724
  Receipt Date: 20120718
  Transmission Date: 20120928
  Serious: Yes (Hospitalization)
  Sender: FDA-Public Use
  Company Number: PHHY2012FR062435

PATIENT
  Sex: Female

DRUGS (10)
  1. PROPOFOL [Concomitant]
     Dosage: UNK
     Dates: start: 20120605, end: 20120607
  2. TRAMADOL HYDROCHLORIDE [Concomitant]
     Dosage: UNK
     Dates: start: 20120606, end: 20120609
  3. ACETAMINOPHEN [Suspect]
     Indication: PAIN
     Dosage: UNK
     Dates: start: 20120606, end: 20120612
  4. LOVENOX [Suspect]
     Dosage: UNK
     Route: 058
     Dates: start: 20120609
  5. DIPRIVAN [Concomitant]
     Dosage: UNK
     Dates: start: 20120607, end: 20120609
  6. KEPPRA [Suspect]
     Indication: EPILEPSY
     Dosage: 500 MG, BID
     Dates: start: 20120605
  7. ATORVASTATIN [Concomitant]
     Dosage: UNK
     Dates: start: 20120606, end: 20120609
  8. LANSOPRAZOLE [Concomitant]
     Dosage: UNK
     Dates: start: 20120607, end: 20120609
  9. NICARDIPINE HCL [Suspect]
     Indication: HYPERTENSION
     Dosage: UNK
     Dates: start: 20120606
  10. ESOMEPRAZOLE [Concomitant]
     Dosage: UNK
     Dates: start: 20120605, end: 20120609

REACTIONS (1)
  - CYTOLYTIC HEPATITIS [None]
